FAERS Safety Report 18683772 (Version 1)
Quarter: 2020Q4

REPORT INFORMATION
  Report Type: Spontaneous
  Country: AR (occurrence: AR)
  Receive Date: 20201230
  Receipt Date: 20201230
  Transmission Date: 20210114
  Serious: Yes (Hospitalization, Other)
  Sender: FDA-Public Use
  Company Number: AR-PFIZER INC-2020416998

PATIENT
  Age: 77 Year
  Sex: Male

DRUGS (2)
  1. SUTENT [Suspect]
     Active Substance: SUNITINIB MALATE
     Indication: RENAL CANCER
     Dosage: 37.5 MG, DAILY (NO TIME OFF)
     Dates: start: 20191212, end: 2020
  2. SUTENT [Suspect]
     Active Substance: SUNITINIB MALATE
     Dosage: 37.5 MG, DAILY (NO TIME OFF)
     Dates: start: 20191212, end: 2020

REACTIONS (7)
  - Dehydration [Unknown]
  - Malaise [Unknown]
  - Off label use [Unknown]
  - Product use issue [Unknown]
  - Feeling of despair [Unknown]
  - Syncope [Unknown]
  - Colitis [Unknown]

NARRATIVE: CASE EVENT DATE: 20191212
